FAERS Safety Report 9298827 (Version 1)
Quarter: 2013Q1

REPORT INFORMATION
  Report Type: Spontaneous
  Country: US (occurrence: None)
  Receive Date: 20121227
  Receipt Date: 20121227
  Transmission Date: 20140127
  Serious: Yes (Hospitalization)
  Sender: FDA-Public Use
  Company Number: PHEH2012US015954

PATIENT
  Sex: Female

DRUGS (2)
  1. AFINITOR [Suspect]
     Indication: SMALL INTESTINE CARCINOMA
     Route: 048
     Dates: start: 20120722, end: 20120817
  2. AFINITOR [Suspect]
     Indication: METASTASES TO LIVER
     Route: 048
     Dates: start: 20120722, end: 20120817

REACTIONS (4)
  - Neoplasm [None]
  - Abdominal distension [None]
  - Decreased appetite [None]
  - Malignant neoplasm progression [None]
